FAERS Safety Report 20336922 (Version 3)
Quarter: 2022Q2

REPORT INFORMATION
  Report Type: Report from Study
  Country: GB (occurrence: None)
  Receive Date: 20220114
  Receipt Date: 20220630
  Transmission Date: 20220721
  Serious: Yes (Hospitalization)
  Sender: FDA-Public Use
  Company Number: GB-ROCHE-2998592

PATIENT
  Age: 67 Year
  Sex: Female
  Weight: 39.3 kg

DRUGS (7)
  1. ATEZOLIZUMAB [Suspect]
     Active Substance: ATEZOLIZUMAB
     Indication: Non-small cell lung cancer
     Dosage: MOST RECENT DOSE OF ATEZOLIZUMAB WAS RECEIVED ON 08/DEC/2021.
     Route: 041
     Dates: start: 20200923
  2. VENLAFAXINE [Concomitant]
     Active Substance: VENLAFAXINE HYDROCHLORIDE
     Indication: Depression
     Route: 048
  3. DOMPERIDONE [Concomitant]
     Active Substance: DOMPERIDONE
     Indication: Nausea
     Route: 048
  4. ACETAMINOPHEN [Concomitant]
     Active Substance: ACETAMINOPHEN
     Indication: Pain
     Dates: start: 20200907
  5. ESTRADIOL\NORETHINDRONE ACETATE [Concomitant]
     Active Substance: ESTRADIOL\NORETHINDRONE ACETATE
     Route: 048
  6. MORPHINE SULFATE [Concomitant]
     Active Substance: MORPHINE SULFATE
     Indication: Pain
     Dosage: 10MG/5ML
     Route: 048
  7. MORPHINE SULFATE [Concomitant]
     Active Substance: MORPHINE SULFATE
     Indication: Dyspnoea

REACTIONS (1)
  - Pneumonia [Recovered/Resolved]

NARRATIVE: CASE EVENT DATE: 20220105
